FAERS Safety Report 24056343 (Version 1)
Quarter: 2024Q3

REPORT INFORMATION
  Report Type: Spontaneous
  Country: US (occurrence: US)
  Receive Date: 20240705
  Receipt Date: 20240705
  Transmission Date: 20241016
  Serious: No
  Sender: JOHNSON AND JOHNSON
  Company Number: US-JNJFOC-20240677347

PATIENT
  Age: 80 Year
  Sex: Female
  Weight: 55.8 kg

DRUGS (11)
  1. OPSUMIT [Suspect]
     Active Substance: MACITENTAN
     Indication: Product used for unknown indication
     Route: 048
  2. TREPROSTINIL [Suspect]
     Active Substance: TREPROSTINIL
     Indication: Pulmonary arterial hypertension
     Route: 055
     Dates: start: 20230928
  3. TADALAFIL [Concomitant]
     Active Substance: TADALAFIL
  4. ROSUVASTATIN CALCIUM [Concomitant]
     Active Substance: ROSUVASTATIN CALCIUM
  5. VITAMIN D3 [Concomitant]
     Active Substance: CHOLECALCIFEROL
  6. FLUTICASONE PROPIONATE [Concomitant]
     Active Substance: FLUTICASONE PROPIONATE
  7. OXYGEN [Concomitant]
     Active Substance: OXYGEN
  8. SPIRONOLACTONE [Concomitant]
     Active Substance: SPIRONOLACTONE
  9. LATANOPROST [Concomitant]
     Active Substance: LATANOPROST
  10. FUROSEMIDE [Concomitant]
     Active Substance: FUROSEMIDE
  11. ASPIRIN [Concomitant]
     Active Substance: ASPIRIN

REACTIONS (2)
  - Condition aggravated [Unknown]
  - Cough [Unknown]
